FAERS Safety Report 7090271-8 (Version None)
Quarter: 2010Q4

REPORT INFORMATION
  Report Type: 
  Country: None (occurrence: None)
  Receive Date: 20101105
  Receipt Date: 20101105
  Transmission Date: 20110411
  Serious: Yes (Other)
  Sender: FDA-Public Use
  Company Number: None

PATIENT
  Sex: Female

DRUGS (1)
  1. XANAX [Suspect]
     Indication: ASTHMA
     Dosage: 1 DAILY FOR 3 DAYS PO
     Route: 048
     Dates: start: 20100601, end: 20100603

REACTIONS (4)
  - HYPERTENSION [None]
  - INSOMNIA [None]
  - SPEECH DISORDER [None]
  - TREMOR [None]
